FAERS Safety Report 10210962 (Version 1)
Quarter: 2014Q2

REPORT INFORMATION
  Report Type: Spontaneous
  Country: US (occurrence: None)
  Receive Date: 20140530
  Receipt Date: 20140530
  Transmission Date: 20141212
  Serious: Yes (Other)
  Sender: FDA-Public Use
  Company Number: None

PATIENT
  Age: 61 Year
  Sex: Female

DRUGS (3)
  1. LIDOCAINE [Suspect]
     Indication: TRIGEMINAL NEURALGIA
     Dosage: 1 PATCH, Q12H, TRANSDERMAL
     Route: 062
     Dates: start: 20140521
  2. LIDOCAINE [Suspect]
     Dosage: 1 PATCH, Q12H, TRANSDERMAL
     Route: 062
     Dates: start: 20140521
  3. LIDOCAINE [Suspect]
     Indication: OSTEOARTHRITIS
     Route: 062
     Dates: start: 20140522

REACTIONS (2)
  - Rash [None]
  - No therapeutic response [None]
